FAERS Safety Report 16160462 (Version 2)
Quarter: 2019Q3

REPORT INFORMATION
  Report Type: Spontaneous
  Country: CL (occurrence: CL)
  Receive Date: 20190405
  Receipt Date: 20190808
  Transmission Date: 20191004
  Serious: Yes (Other)
  Sender: FDA-Public Use
  Company Number: CL-SUN PHARMACEUTICAL INDUSTRIES LTD-2019R1-204101

PATIENT
  Age: 89 Year
  Sex: Female

DRUGS (1)
  1. PREDNISONE. [Suspect]
     Active Substance: PREDNISONE
     Indication: TEMPORAL ARTERITIS
     Dosage: UNK
     Route: 048

REACTIONS (1)
  - Infarction [Unknown]
